FAERS Safety Report 10214401 (Version 1)
Quarter: 2014Q2

REPORT INFORMATION
  Report Type: Spontaneous
  Country: US (occurrence: None)
  Receive Date: 20140602
  Receipt Date: 20140602
  Transmission Date: 20141212
  Serious: Yes (Hospitalization)
  Sender: FDA-Public Use
  Company Number: None

PATIENT
  Age: 59 Year
  Sex: Female
  Weight: 75.3 kg

DRUGS (2)
  1. RIBASPHERE [Suspect]
     Indication: CHRONIC HEPATITIS C
     Dosage: ORAL 047 BID
     Route: 048
     Dates: start: 20140219, end: 20140510
  2. PEGASYS [Suspect]
     Indication: CHRONIC HEPATITIS C
     Dosage: SUBCUTANEOUS 057 INJECTABLE QWK
     Dates: start: 20140219, end: 20140510

REACTIONS (3)
  - Gait disturbance [None]
  - Sluggishness [None]
  - Blood disorder [None]
